FAERS Safety Report 12484486 (Version 2)
Quarter: 2017Q3

REPORT INFORMATION
  Report Type: Report from Study
  Country: BR (occurrence: BR)
  Receive Date: 20160621
  Receipt Date: 20170823
  Transmission Date: 20171127
  Serious: Yes (Hospitalization)
  Sender: FDA-Public Use
  Company Number: PHHY2016BR084291

PATIENT
  Sex: Female
  Weight: 98 kg

DRUGS (9)
  1. BRASART [Suspect]
     Active Substance: VALSARTAN
     Indication: BLOOD PRESSURE ABNORMAL
     Dosage: 160 MG, PRN (2 TABLETS)
     Route: 065
  2. FOSTAIR [Concomitant]
     Active Substance: BECLOMETHASONE\FORMOTEROL
     Indication: ASTHMA
     Route: 065
  3. XOLAIR [Suspect]
     Active Substance: OMALIZUMAB
     Indication: ASTHMA
     Dosage: 2 DF, QMO
     Route: 065
  4. MONTELAIR [Concomitant]
     Active Substance: MONTELUKAST SODIUM
     Indication: LUNG DISORDER
     Route: 065
  5. DIOVAN [Suspect]
     Active Substance: VALSARTAN
     Indication: HYPERTENSION
     Dosage: 160 MG, PRN
     Route: 048
  6. PRELONE [Suspect]
     Active Substance: PREDNISOLONE
     Indication: PRODUCT USED FOR UNKNOWN INDICATION
     Route: 065
  7. VENALOT                            /00843801/ [Suspect]
     Active Substance: COUMARIN\TROXERUTIN
     Indication: POOR PERIPHERAL CIRCULATION
     Route: 065
  8. HIXIZINE [Concomitant]
     Active Substance: HYDROXYZINE HYDROCHLORIDE
     Indication: HYPERSENSITIVITY
     Route: 065
  9. SPIRIVA [Concomitant]
     Active Substance: TIOTROPIUM BROMIDE MONOHYDRATE
     Indication: PRODUCT USED FOR UNKNOWN INDICATION
     Route: 065

REACTIONS (13)
  - Asthma [Unknown]
  - Sialoadenitis [Unknown]
  - Blood pressure increased [Unknown]
  - Cough [Unknown]
  - Respiratory failure [Unknown]
  - Drug intolerance [Unknown]
  - Dyspnoea [Unknown]
  - Cyanosis [Unknown]
  - Salivary gland enlargement [Unknown]
  - Swollen tongue [Unknown]
  - Malaise [Unknown]
  - Urinary incontinence [Unknown]
  - Memory impairment [Unknown]
